FAERS Safety Report 7525150-2 (Version None)
Quarter: 2011Q2

REPORT INFORMATION
  Report Type: 
  Country: None (occurrence: None)
  Receive Date: 20110606
  Receipt Date: 20110531
  Transmission Date: 20111010
  Serious: Yes (Death)
  Sender: FDA-Public Use
  Company Number: CA-CELGENEUS-028-21880-11053909

PATIENT
  Sex: Male

DRUGS (10)
  1. CRESTOR [Concomitant]
     Route: 065
  2. NITRO-DUR [Concomitant]
     Route: 065
  3. ASPIRIN [Concomitant]
     Indication: ANTICOAGULANT THERAPY
     Route: 065
  4. PANTALOC [Concomitant]
     Route: 065
  5. STATEX [Concomitant]
     Route: 065
  6. FUROSEMIDE [Concomitant]
     Route: 065
  7. RAMIPRIL [Concomitant]
     Route: 065
  8. METOPROLOL TARTRATE [Concomitant]
     Route: 065
  9. REVLIMID [Suspect]
     Indication: MULTIPLE MYELOMA
     Dosage: 15 MILLIGRAM
     Route: 048
     Dates: start: 20110510, end: 20110525
  10. EPREX [Concomitant]
     Route: 065

REACTIONS (1)
  - DEATH [None]
